FAERS Safety Report 25524439 (Version 1)
Quarter: 2025Q3

REPORT INFORMATION
  Report Type: Spontaneous
  Country: US (occurrence: None)
  Receive Date: 20250704
  Receipt Date: 20250704
  Transmission Date: 20251021
  Serious: Yes (Other)
  Sender: FDA-CTU
  Company Number: None

PATIENT
  Age: 60 Year
  Sex: Male
  Weight: 91.35 kg

DRUGS (7)
  1. LAMOTRIGINE [Suspect]
     Active Substance: LAMOTRIGINE
     Dosage: 60 TABLET(S) TWICE A DAY ORAL ?
     Route: 048
     Dates: start: 202507, end: 20250704
  2. ROSUVASTATIN [Concomitant]
     Active Substance: ROSUVASTATIN
  3. Amlodipine - Benaz 10/20mg [Concomitant]
  4. Megan Mens vitamins [Concomitant]
  5. FISH OIL [Concomitant]
     Active Substance: FISH OIL
  6. HYDROXYZINE HYDROCHLORIDE [Suspect]
     Active Substance: HYDROXYZINE HYDROCHLORIDE
  7. VITAMINS [Concomitant]
     Active Substance: VITAMINS

REACTIONS (1)
  - Product dispensing error [None]

NARRATIVE: CASE EVENT DATE: 20250702
